FAERS Safety Report 7994616-3 (Version None)
Quarter: 2011Q4

REPORT INFORMATION
  Report Type: 
  Country: None (occurrence: None)
  Receive Date: 20111220
  Receipt Date: 20111213
  Transmission Date: 20120403
  Serious: Yes (Other)
  Sender: FDA-Public Use
  Company Number: US-SANOFI-AVENTIS-2011SA081826

PATIENT
  Age: 74 Year
  Sex: Female

DRUGS (1)
  1. LANTUS [Suspect]
     Dosage: 20 UNITS IN THE AM AND 40 UNITS IN THE PM
     Route: 058
     Dates: start: 20060101, end: 20110101

REACTIONS (2)
  - FALL [None]
  - UPPER LIMB FRACTURE [None]
